FAERS Safety Report 5150730-1 (Version None)
Quarter: 2006Q4

REPORT INFORMATION
  Report Type: 
  Country: None (occurrence: None)
  Receive Date: 20061108
  Receipt Date: 20061026
  Transmission Date: 20070319
  Serious: Yes (Hospitalization)
  Sender: FDA-Public Use
  Company Number: 2006114329

PATIENT
  Age: 74 Year
  Sex: Male
  Weight: 72.3 kg

DRUGS (3)
  1. SUTENT [Suspect]
     Indication: RENAL CELL CARCINOMA STAGE UNSPECIFIED
     Dosage: 50 MG (50 MG, 1 IN 1 D), ORAL
     Route: 048
     Dates: start: 20060816
  2. ATENOLOL [Concomitant]
  3. BENDROFLUAZIDE (BENDROFLUMETHIAZIDE) [Concomitant]

REACTIONS (4)
  - BLOOD SODIUM DECREASED [None]
  - BLOOD UREA INCREASED [None]
  - FATIGUE [None]
  - HYPERBILIRUBINAEMIA [None]
